FAERS Safety Report 4677085-0 (Version None)
Quarter: 2005Q2

REPORT INFORMATION
  Report Type: 
  Country: None (occurrence: None)
  Receive Date: 20050525
  Receipt Date: 20050411
  Transmission Date: 20051028
  Serious: No
  Sender: FDA-Public Use
  Company Number: SU-2005-003413

PATIENT
  Age: 66 Year
  Sex: Female
  Weight: 70.3075 kg

DRUGS (5)
  1. BENICAR [Suspect]
     Indication: HYPERTENSION
     Dosage: 20 MG QD PO
     Route: 048
     Dates: start: 20050101
  2. HYDROCHLOROTHIAZIDE [Concomitant]
  3. SYNTHROID [Concomitant]
  4. ALBUTEROL [Concomitant]
  5. SINGULAIR [Concomitant]

REACTIONS (5)
  - BRONCHITIS [None]
  - CARDIAC FLUTTER [None]
  - CHEST DISCOMFORT [None]
  - DYSPNOEA [None]
  - SINUS DISORDER [None]
